FAERS Safety Report 23672735 (Version 1)
Quarter: 2024Q1

REPORT INFORMATION
  Report Type: Spontaneous
  Country: KR (occurrence: KR)
  Receive Date: 20240326
  Receipt Date: 20240326
  Transmission Date: 20240410
  Serious: Yes (Hospitalization, Other)
  Sender: FDA-Public Use
  Company Number: KR-BoehringerIngelheim-2024-BI-017480

PATIENT
  Age: 61 Year
  Sex: Male
  Weight: 82.6 kg

DRUGS (5)
  1. JARDIANCE [Suspect]
     Active Substance: EMPAGLIFLOZIN
     Indication: Type 2 diabetes mellitus
     Dosage: UNIT DOSE : 1 DOSAGE FORM
     Dates: start: 20220919, end: 20230118
  2. Telmisartan + Amlodipine Besylate [Concomitant]
     Indication: Hypertension
     Dosage: UNIT DOSE : 1 DOSAGE FORM
     Dates: start: 20140121
  3. SITAGLIPTIN PHOSPHATE [Concomitant]
     Active Substance: SITAGLIPTIN PHOSPHATE
     Indication: Type 2 diabetes mellitus
     Dosage: UNIT DOSE : 1 DOSAGE FORM
     Dates: start: 20220919, end: 20230118
  4. METFORMIN HYDROCHLORIDE [Concomitant]
     Active Substance: METFORMIN HYDROCHLORIDE
     Indication: Type 2 diabetes mellitus
     Dosage: UNIT DOSE : 2 DOSAGE FORM
     Dates: start: 20220919, end: 20230118
  5. INDAPAMIDE [Concomitant]
     Active Substance: INDAPAMIDE
     Indication: Hypertension
     Dosage: UNIT DOSE : 1 DOSAGE FORM
     Dates: start: 20130521

REACTIONS (1)
  - Appendicitis perforated [Recovered/Resolved]

NARRATIVE: CASE EVENT DATE: 20230118
